FAERS Safety Report 23205603 (Version 1)
Quarter: 2023Q4

REPORT INFORMATION
  Report Type: Other
  Country: None (occurrence: US)
  Receive Date: 20231120
  Receipt Date: 20231120
  Transmission Date: 20240109
  Serious: Yes (Other)
  Sender: FDA-Public Use
  Company Number: US-The Mentholatum Company-2148471

PATIENT
  Sex: Female

DRUGS (1)
  1. OXY ADVANCED CARE SOOTHING CREAM ACNE CLEANSER [Suspect]
     Active Substance: BENZOYL PEROXIDE
     Indication: Acne
     Route: 061
     Dates: start: 20230301, end: 20230728

REACTIONS (1)
  - Adverse reaction [Recovering/Resolving]

NARRATIVE: CASE EVENT DATE: 20230301
